FAERS Safety Report 4586798-0 (Version None)
Quarter: 2005Q2

REPORT INFORMATION
  Report Type: 
  Country: None (occurrence: None)
  Receive Date: 20050218
  Receipt Date: 20040929
  Transmission Date: 20051028
  Serious: Yes (Life-Threatening)
  Sender: FDA-Public Use
  Company Number: 200413062JP

PATIENT
  Age: 13 Year
  Sex: Female

DRUGS (5)
  1. LANTUS [Suspect]
     Indication: DIABETES MELLITUS INSULIN-DEPENDENT
     Dosage: DOSE UNIT: UNITS
     Route: 058
     Dates: start: 20040221, end: 20040424
  2. OPTIPEN (INSULIN PUMP) [Suspect]
  3. HUMALOG [Concomitant]
     Indication: DIABETES MELLITUS INSULIN-DEPENDENT
     Dosage: DOSE: 8-10; FREQUENCY: BEFORE MEALS; DOSE UNIT: UNITS
     Route: 058
  4. SLOW FE [Concomitant]
     Indication: ANAEMIA
     Route: 048
     Dates: end: 20040325
  5. PENFILL N [Concomitant]
     Indication: DIABETES MELLITUS INSULIN-DEPENDENT
     Dosage: DOSE UNIT: UNITS
     Route: 058
     Dates: start: 20040117, end: 20040220

REACTIONS (6)
  - BLOOD GLUCOSE INCREASED [None]
  - CONVULSION [None]
  - GLYCOSYLATED HAEMOGLOBIN INCREASED [None]
  - HYPOAESTHESIA [None]
  - HYPOGLYCAEMIA [None]
  - LOSS OF CONSCIOUSNESS [None]
